FAERS Safety Report 19949086 (Version 1)
Quarter: 2021Q4

REPORT INFORMATION
  Report Type: Spontaneous
  Country: US (occurrence: US)
  Receive Date: 20211011
  Receipt Date: 20211011
  Transmission Date: 20220303
  Serious: No
  Sender: FDA-Public Use
  Company Number: None

PATIENT
  Sex: Female

DRUGS (1)
  1. SKYRIZI [Suspect]
     Active Substance: RISANKIZUMAB-RZAA
     Indication: Psoriasis
     Dosage: ?          OTHER DOSE:75MG/.83ML ;OTHER FREQUENCY:WEEK 4, EVERY 12 W;
     Route: 058
     Dates: start: 202104

REACTIONS (2)
  - Rash [None]
  - Pruritus [None]
